FAERS Safety Report 10075760 (Version 2)
Quarter: 2014Q2

REPORT INFORMATION
  Report Type: Spontaneous
  Country: US (occurrence: US)
  Receive Date: 20140414
  Receipt Date: 20140616
  Transmission Date: 20141212
  Serious: Yes (Hospitalization, Other)
  Sender: FDA-Public Use
  Company Number: US-BAYER-2014-054129

PATIENT
  Age: 47 Year
  Sex: Female
  Weight: 61.22 kg

DRUGS (4)
  1. YASMIN [Suspect]
     Dosage: UNK
     Route: 048
     Dates: start: 200602, end: 200605
  2. IRON [Concomitant]
     Dosage: 325 MG, DAILY
  3. FLEXERIL [Concomitant]
  4. VOLTAREN [Concomitant]

REACTIONS (10)
  - Pulmonary embolism [Recovered/Resolved]
  - Myocardial infarction [None]
  - Deep vein thrombosis [None]
  - Cerebrovascular accident [None]
  - Gallbladder disorder [None]
  - Thrombosis [None]
  - Dyspnoea [Recovered/Resolved]
  - Pain [None]
  - Injury [None]
  - Mental disorder [None]
